FAERS Safety Report 19377342 (Version 2)
Quarter: 2021Q3

REPORT INFORMATION
  Report Type: Spontaneous
  Country: CA (occurrence: CA)
  Receive Date: 20210604
  Receipt Date: 20210701
  Transmission Date: 20211014
  Serious: Yes (Other)
  Sender: FDA-Public Use
  Company Number: CA-AMERICAN REGENT INC-2021001444

PATIENT

DRUGS (3)
  1. VENOFER [Suspect]
     Active Substance: IRON SUCROSE
     Indication: PRODUCT USED FOR UNKNOWN INDICATION
     Dosage: 300 MG IN 250 ML NS
     Route: 042
     Dates: start: 20210524, end: 20210524
  2. VENOFER [Suspect]
     Active Substance: IRON SUCROSE
     Dosage: 300 MG IN 250 ML NS
     Route: 042
  3. VENOFER [Suspect]
     Active Substance: IRON SUCROSE
     Dosage: 300 MG IN 250 ML NS
     Route: 042

REACTIONS (12)
  - Peripheral coldness [Unknown]
  - Limb discomfort [Unknown]
  - Grip strength decreased [Unknown]
  - Livedo reticularis [Unknown]
  - Urticaria [Unknown]
  - Muscular weakness [Unknown]
  - Hypotension [Unknown]
  - Headache [Unknown]
  - Hypoaesthesia [Unknown]
  - Somnolence [Unknown]
  - Erythema [Unknown]
  - Peripheral swelling [Unknown]

NARRATIVE: CASE EVENT DATE: 20210524
